FAERS Safety Report 6393053-5 (Version None)
Quarter: 2009Q4

REPORT INFORMATION
  Report Type: 
  Country: None (occurrence: None)
  Receive Date: 20091008
  Receipt Date: 20091005
  Transmission Date: 20100525
  Serious: Yes (Life-Threatening, Hospitalization)
  Sender: FDA-Public Use
  Company Number: NL-ELI_LILLY_AND_COMPANY-NL200909005281

PATIENT
  Sex: Female
  Weight: 85 kg

DRUGS (11)
  1. SOMATROPIN [Suspect]
     Indication: GROWTH HORMONE DEFICIENCY
     Dosage: 0.1 MG, UNK
     Route: 058
     Dates: start: 20080124
  2. COTRIMOXAZOL FORTE [Concomitant]
     Indication: PROPHYLAXIS
     Dates: start: 20080101
  3. OXYCONTIN [Concomitant]
     Indication: ARTHRALGIA
     Dates: start: 20080101
  4. DESMOPRESSIN ACETATE [Concomitant]
     Indication: DIABETES INSIPIDUS
     Dates: start: 20030101
  5. HYDROCORTISONE [Concomitant]
     Indication: ADRENAL INSUFFICIENCY
     Dates: start: 20030101
  6. THYROX [Concomitant]
     Indication: SECONDARY HYPOTHYROIDISM
     Dates: start: 20030101
  7. TIMOPTIC [Concomitant]
     Indication: GLAUCOMA
     Dates: start: 20080101
  8. ESOMEPRAZOL /01479302/ [Concomitant]
     Indication: PROPHYLAXIS
     Dates: start: 20080101
  9. AZATHIOPRINE [Concomitant]
     Indication: VASCULITIS
     Dates: start: 20030101
  10. ARESTAL [Concomitant]
     Indication: DIARRHOEA
     Dates: start: 20080101
  11. MARVELON [Concomitant]
     Indication: HYPOGONADISM
     Dates: start: 20030101

REACTIONS (3)
  - CARDIAC ARREST [None]
  - SECONDARY ADRENOCORTICAL INSUFFICIENCY [None]
  - TYPE 2 DIABETES MELLITUS [None]
